FAERS Safety Report 7799691-7 (Version None)
Quarter: 2011Q4

REPORT INFORMATION
  Report Type: 
  Country: None (occurrence: None)
  Receive Date: 20111004
  Receipt Date: 20110922
  Transmission Date: 20120403
  Serious: Yes (Hospitalization)
  Sender: FDA-Public Use
  Company Number: 2009JP007110

PATIENT
  Age: 50 Year
  Sex: Female
  Weight: 55 kg

DRUGS (6)
  1. METHOTREXATE [Concomitant]
  2. CELECOXIB [Concomitant]
  3. TACROLIMUS [Suspect]
     Indication: RHEUMATOID ARTHRITIS
     Dosage: 1.5 MG, /D, ORAL; 1 MG, /D, ORAL
     Route: 048
     Dates: start: 20090429, end: 20090611
  4. TACROLIMUS [Suspect]
     Indication: RHEUMATOID ARTHRITIS
     Dosage: 1.5 MG, /D, ORAL; 1 MG, /D, ORAL
     Route: 048
     Dates: start: 20091001
  5. PREDNISOLONE [Concomitant]
  6. FOLIC ACID [Concomitant]

REACTIONS (6)
  - DRUG INEFFECTIVE [None]
  - PRURITUS [None]
  - GASTRIC ULCER [None]
  - CONDITION AGGRAVATED [None]
  - ASTHENIA [None]
  - RHEUMATOID ARTHRITIS [None]
